FAERS Safety Report 10468895 (Version 2)
Quarter: 2014Q4

REPORT INFORMATION
  Report Type: Spontaneous
  Country: JP (occurrence: JP)
  Receive Date: 20140923
  Receipt Date: 20141013
  Transmission Date: 20150528
  Serious: Yes (Hospitalization)
  Sender: FDA-Public Use
  Company Number: JP-AMGEN-JPNSP2014072186

PATIENT
  Age: 79 Year
  Sex: Female

DRUGS (14)
  1. PARIET [Concomitant]
     Active Substance: RABEPRAZOLE SODIUM
     Dosage: 10 MG, QD
     Route: 065
  2. PURSENNID                          /00142207/ [Concomitant]
     Active Substance: SENNOSIDES A AND B
     Dosage: 1 DF, QD
     Route: 065
  3. RHEUMATREX [Concomitant]
     Active Substance: METHOTREXATE SODIUM
     Dosage: 4 MG, QWK
     Route: 065
  4. ASPARA-CA [Concomitant]
     Active Substance: CALCIUM ASPARTATE
     Dosage: 3 DF, QD
     Route: 065
  5. MEDROL [Concomitant]
     Active Substance: METHYLPREDNISOLONE
     Dosage: 2 MG, QD
     Route: 065
  6. ONEALFA [Concomitant]
     Active Substance: ALFACALCIDOL
     Dosage: 1 MG, QD
     Route: 065
  7. OPALMON [Concomitant]
     Active Substance: LIMAPROST
     Dosage: 15 MG, QD
     Route: 065
  8. DOGMATYL [Concomitant]
     Active Substance: SULPIRIDE
     Dosage: 25 MG, QD
     Route: 065
  9. BLOPRESS [Concomitant]
     Active Substance: CANDESARTAN CILEXETIL
     Dosage: 2 MG, QD
     Route: 065
  10. AMOBAN [Concomitant]
     Active Substance: ZOPICLONE
     Dosage: 7.5 MG, QD
     Route: 065
  11. PRALIA [Suspect]
     Active Substance: DENOSUMAB
     Indication: PRODUCT USED FOR UNKNOWN INDICATION
     Dosage: 60 MG, UNK
     Route: 058
     Dates: start: 20140821
  12. VIVIANT [Concomitant]
     Active Substance: BAZEDOXIFENE
     Dosage: 20 MG, QD
     Route: 065
  13. SELBEX [Concomitant]
     Active Substance: TEPRENONE
     Dosage: 150 MG, QD
     Route: 065
  14. ALOSENN                            /02118001/ [Concomitant]
     Dosage: 0.5 MG, QD
     Route: 065

REACTIONS (1)
  - Pancytopenia [Recovered/Resolved]

NARRATIVE: CASE EVENT DATE: 20140831
